FAERS Safety Report 21252710 (Version 1)
Quarter: 2022Q3

REPORT INFORMATION
  Report Type: Spontaneous
  Country: FR (occurrence: FR)
  Receive Date: 20220825
  Receipt Date: 20220825
  Transmission Date: 20221027
  Serious: Yes (Hospitalization)
  Sender: FDA-Public Use
  Company Number: None

PATIENT
  Age: 61 Year
  Sex: Female

DRUGS (6)
  1. ATORVASTATIN [Suspect]
     Active Substance: ATORVASTATIN
     Indication: Arteriosclerosis
     Dosage: UNIT DOSE :  40MG, DURATION :  4 DAYS, FREQUENCY TIME : 1 DAY
     Route: 065
     Dates: start: 20220728, end: 20220801
  2. ATORVASTATIN [Suspect]
     Active Substance: ATORVASTATIN
     Dosage: UNIT DOSE :  20MG, FREQUENCY TIME : 1 DAY,THERAPY START DATE  : NASK
     Route: 065
     Dates: end: 20220728
  3. ACETAMINOPHEN [Suspect]
     Active Substance: ACETAMINOPHEN
     Indication: Pain
     Dosage: UNIT DOSE :  1 GRAM, DURATION : 4 YEARS
     Route: 065
     Dates: start: 2018, end: 20220801
  4. CETIRIZINE HYDROCHLORIDE [Suspect]
     Active Substance: CETIRIZINE HYDROCHLORIDE
     Indication: Multiple allergies
     Dosage: UNIT DOSE :  10MG, FREQUENCY TIME : 1 DAY,THERAPY START DATE  : NASK
     Route: 065
     Dates: end: 20220801
  5. TRAMADOL HYDROCHLORIDE [Suspect]
     Active Substance: TRAMADOL HYDROCHLORIDE
     Indication: Pain
     Dosage: UNIT DOSE :  50MG,  DURATION : 4 YEARS, FREQUENCY TIME : 12 HOURS
     Route: 065
     Dates: start: 2018, end: 20220801
  6. TINZAPARIN SODIUM [Suspect]
     Active Substance: TINZAPARIN SODIUM
     Indication: Anticoagulant therapy
     Dosage: UNIT DOSE : 10000 IU, FREQUENCY TIME : 1 DAY, THERAPY START DATE  : NASK
     Route: 065
     Dates: start: 20220728

REACTIONS (1)
  - Hepatic function abnormal [Not Recovered/Not Resolved]

NARRATIVE: CASE EVENT DATE: 20220730
